FAERS Safety Report 25430545 (Version 1)
Quarter: 2025Q2

REPORT INFORMATION
  Report Type: Spontaneous
  Country: US (occurrence: US)
  Receive Date: 20250612
  Receipt Date: 20250612
  Transmission Date: 20250716
  Serious: No
  Sender: SANOFI AVENTIS
  Company Number: US-SANOFI-02553390

PATIENT

DRUGS (2)
  1. DUPIXENT [Suspect]
     Active Substance: DUPILUMAB
     Indication: Squamous cell carcinoma of skin
  2. LIBTAYO [Concomitant]
     Active Substance: CEMIPLIMAB-RWLC

REACTIONS (2)
  - Off label use [Unknown]
  - Therapeutic response unexpected [Unknown]
